FAERS Safety Report 9226725 (Version 2)
Quarter: 2013Q2

REPORT INFORMATION
  Report Type: Spontaneous
  Country: NL (occurrence: NL)
  Receive Date: 20130412
  Receipt Date: 20130422
  Transmission Date: 20140414
  Serious: Yes (Hospitalization)
  Sender: FDA-Public Use
  Company Number: NL-009507513-1304NLD004987

PATIENT
  Age: 49 Year
  Sex: Female
  Weight: 68 kg

DRUGS (1)
  1. MARVELON [Suspect]
     Indication: MENSTRUATION IRREGULAR
     Dosage: 1 TIMES PER 1 CYCLICAL 1 DF
     Route: 048
     Dates: start: 201205, end: 20120729

REACTIONS (2)
  - Pneumonia [Recovering/Resolving]
  - Pulmonary embolism [Recovering/Resolving]
